FAERS Safety Report 19786211 (Version 1)
Quarter: 2021Q3

REPORT INFORMATION
  Report Type: Spontaneous
  Country: US (occurrence: US)
  Receive Date: 20210903
  Receipt Date: 20210903
  Transmission Date: 20211014
  Serious: Yes (Hospitalization)
  Sender: FDA-Public Use
  Company Number: US-KINDEVA DRUG DELIVERY L.P.-2117989

PATIENT
  Age: 55 Year
  Sex: Female

DRUGS (2)
  1. ALBUTEROL SULFATE HFA TMAI [Suspect]
     Active Substance: ALBUTEROL SULFATE
  2. ALBUTEROL SULFATE. [Suspect]
     Active Substance: ALBUTEROL SULFATE
     Indication: ASTHMA
     Route: 055

REACTIONS (5)
  - Asthma [Recovering/Resolving]
  - Respiratory distress [Recovering/Resolving]
  - Drug ineffective [Unknown]
  - Aphonia [Recovering/Resolving]
  - Dependence on respirator [Recovering/Resolving]

NARRATIVE: CASE EVENT DATE: 202108
